FAERS Safety Report 9676150 (Version 1)
Quarter: 2013Q4

REPORT INFORMATION
  Report Type: Spontaneous
  Country: US (occurrence: None)
  Receive Date: 20131105
  Receipt Date: 20131105
  Transmission Date: 20140711
  Serious: Yes (Other)
  Sender: FDA-Public Use
  Company Number: CPI-5121

PATIENT
  Age: 56 Year
  Sex: Male

DRUGS (11)
  1. LACTULOSE [Suspect]
     Indication: HEPATIC ENCEPHALOPATHY
     Dosage: PO/ENEMA
     Route: 048
     Dates: start: 20010101, end: 20010102
  2. DELORAZEPAM [Concomitant]
  3. FOLINIC ACID [Concomitant]
  4. VITAMIN B12 [Concomitant]
  5. THIAMINE [Concomitant]
  6. DIURETIC [Concomitant]
  7. ANTIBIOTIC [Concomitant]
  8. LACTULOSE [Concomitant]
  9. ISONIAZID [Concomitant]
  10. ETHAMBUTOL [Concomitant]
  11. RIFAMPICIN [Suspect]

REACTIONS (4)
  - Psychomotor hyperactivity [None]
  - Confusional state [None]
  - Disorientation [None]
  - Hallucination [None]
